FAERS Safety Report 20771959 (Version 1)
Quarter: 2022Q2

REPORT INFORMATION
  Report Type: Report from Study
  Country: RU (occurrence: RU)
  Receive Date: 20220501
  Receipt Date: 20220501
  Transmission Date: 20220720
  Serious: Yes (Death)
  Sender: FDA-Public Use
  Company Number: RU-NOVARTISPH-NVSC2022RU092332

PATIENT
  Age: 50 Year
  Sex: Female

DRUGS (19)
  1. MEKINIST [Suspect]
     Active Substance: TRAMETINIB DIMETHYL SULFOXIDE
     Indication: Malignant melanoma
     Dosage: UNK
     Route: 048
     Dates: start: 20220222, end: 20220407
  2. TAFINLAR [Suspect]
     Active Substance: DABRAFENIB MESYLATE
     Indication: Malignant melanoma
     Dosage: 150 MG, BID
     Route: 048
     Dates: start: 20220222, end: 20220407
  3. PALEXIA [Concomitant]
     Active Substance: TAPENTADOL HYDROCHLORIDE
     Indication: Product used for unknown indication
     Dosage: 50 (100,150, 200, 250) 2 TIMES DAILY
     Route: 065
  4. TRIMEPERIDINE [Concomitant]
     Active Substance: TRIMEPERIDINE
     Indication: Product used for unknown indication
     Dosage: UNK UNK, BID
     Route: 065
  5. FOLIC ACID [Concomitant]
     Active Substance: FOLIC ACID
     Indication: Product used for unknown indication
     Dosage: UNK
     Route: 065
  6. ETHAMSYLATE [Concomitant]
     Active Substance: ETHAMSYLATE
     Indication: Product used for unknown indication
     Dosage: 500 MG, BID
     Route: 030
  7. TRANEXAMIC ACID [Concomitant]
     Active Substance: TRANEXAMIC ACID
     Indication: Product used for unknown indication
     Dosage: 750 MG, QD (750 MG PER 250 NORMAL SALINE)
     Route: 042
  8. MEROPENEM [Concomitant]
     Active Substance: MEROPENEM
     Indication: Product used for unknown indication
     Dosage: 1, UNK, TID
     Route: 041
  9. MEROPENEM [Concomitant]
     Active Substance: MEROPENEM
     Dosage: 1000 MG, TID (SODIUM CHLORIDE 0.9% (250 ML)
     Route: 042
     Dates: start: 20220402
  10. TEICOPLANIN [Concomitant]
     Active Substance: TEICOPLANIN
     Indication: Product used for unknown indication
     Dosage: 400 UNK, QD (FOR 5 DAYS)
     Route: 042
  11. TEICOPLANIN [Concomitant]
     Active Substance: TEICOPLANIN
     Dosage: UNK, (400.0 FOR 5 DAYS)
     Route: 041
  12. KETOROLAC [Concomitant]
     Active Substance: KETOROLAC TROMETHAMINE
     Indication: Product used for unknown indication
     Dosage: 60 MG, QD
     Route: 042
     Dates: start: 20220331, end: 20220331
  13. KETOROLAC [Concomitant]
     Active Substance: KETOROLAC TROMETHAMINE
     Dosage: 60 MG (WHEN SYMPTOMATIC)
     Route: 030
     Dates: start: 20220401
  14. SODIUM CHLORIDE [Concomitant]
     Active Substance: SODIUM CHLORIDE
     Indication: Product used for unknown indication
     Dosage: 500 ML, QD (IN THE MORNING)
     Route: 042
     Dates: start: 20220401
  15. TORSEMIDE [Concomitant]
     Active Substance: TORSEMIDE
     Indication: Product used for unknown indication
     Dosage: 10 MG, QD (IN THE MORNING)
     Route: 048
     Dates: start: 20220401
  16. OMEPRAZOLE [Concomitant]
     Active Substance: OMEPRAZOLE
     Indication: Product used for unknown indication
     Dosage: 20 MG, BID
     Route: 048
     Dates: start: 20220401
  17. APIXABAN [Concomitant]
     Active Substance: APIXABAN
     Indication: Product used for unknown indication
     Dosage: 2.5 MG, BID
     Route: 048
     Dates: start: 20220401
  18. FUROSEMIDE [Concomitant]
     Active Substance: FUROSEMIDE
     Indication: Product used for unknown indication
     Dosage: 60 MG, QD
     Route: 042
     Dates: start: 20220401
  19. TRANEXAMIC ACID [Concomitant]
     Active Substance: TRANEXAMIC ACID
     Indication: Product used for unknown indication
     Dosage: UNK
     Route: 065

REACTIONS (19)
  - Metastases to peritoneum [Fatal]
  - Brain oedema [Fatal]
  - Metastatic neoplasm [Fatal]
  - Malignant melanoma [Fatal]
  - Activated partial thromboplastin time prolonged [Unknown]
  - Amylase decreased [Unknown]
  - Blood albumin decreased [Unknown]
  - Blood lactate dehydrogenase increased [Unknown]
  - Blood sodium decreased [Unknown]
  - Blood urea increased [Unknown]
  - Blood uric acid increased [Unknown]
  - Carbohydrate antigen 125 increased [Unknown]
  - C-reactive protein increased [Unknown]
  - Eosinophil count increased [Unknown]
  - Erythroblast count increased [Unknown]
  - Procalcitonin increased [Unknown]
  - Serum ferritin increased [Unknown]
  - Blood creatinine increased [Unknown]
  - Protein total decreased [Unknown]

NARRATIVE: CASE EVENT DATE: 20220408
